FAERS Safety Report 9102779 (Version 1)
Quarter: 2013Q1

REPORT INFORMATION
  Report Type: Spontaneous
  Country: FR (occurrence: FR)
  Receive Date: 20130219
  Receipt Date: 20130219
  Transmission Date: 20140127
  Serious: Yes (Other)
  Sender: FDA-Public Use
  Company Number: FR-PFIZER INC-2013059696

PATIENT
  Age: 77 Year
  Sex: Male

DRUGS (1)
  1. INSPRA [Suspect]
     Indication: CARDIAC FAILURE
     Dosage: 25 MG FILM-COATED TABLET, 0.5 DOSAGE FORM DAILY (12.5 MG, 1X/DAY)
     Route: 048
     Dates: start: 20121009, end: 20121112

REACTIONS (1)
  - Dermatitis bullous [Recovered/Resolved]
